FAERS Safety Report 4384945-7 (Version None)
Quarter: 2004Q2

REPORT INFORMATION
  Report Type: 
  Country: None (occurrence: None)
  Receive Date: 20040625
  Receipt Date: 20040617
  Transmission Date: 20050107
  Serious: Yes (Life-Threatening)
  Sender: FDA-Public Use
  Company Number: JP-ROCHE-371248

PATIENT
  Age: 71 Year
  Sex: Male
  Weight: 63 kg

DRUGS (7)
  1. PANALDINE [Suspect]
     Route: 048
     Dates: start: 20040403, end: 20040521
  2. SIGMART [Concomitant]
     Route: 048
     Dates: start: 19981209
  3. ALFAROL [Concomitant]
     Route: 048
     Dates: start: 20020516
  4. ASPIRIN [Concomitant]
     Route: 048
     Dates: start: 20040403
  5. MYSLEE [Concomitant]
     Route: 048
     Dates: start: 20040508, end: 20040508
  6. MEXITIL [Concomitant]
     Route: 048
     Dates: start: 20040508, end: 20040508
  7. HUSTAZOL [Concomitant]
     Route: 048
     Dates: start: 20040508, end: 20040513

REACTIONS (6)
  - ANAEMIA [None]
  - DYSPNOEA [None]
  - HAEMODIALYSIS [None]
  - PULMONARY OEDEMA [None]
  - RALES [None]
  - RESPIRATORY FAILURE [None]
